FAERS Safety Report 9927050 (Version 1)
Quarter: 2014Q1

REPORT INFORMATION
  Report Type: Spontaneous
  Country: US (occurrence: US)
  Receive Date: 20140226
  Receipt Date: 20140226
  Transmission Date: 20141002
  Serious: No
  Sender: FDA-Public Use
  Company Number: US-AMGEN-USASP2014000005

PATIENT
  Age: 44 Year
  Sex: Female
  Weight: 58.96 kg

DRUGS (4)
  1. ENBREL [Suspect]
     Indication: PRODUCT USED FOR UNKNOWN INDICATION
     Dosage: 50 MG, QWK
     Route: 058
     Dates: end: 20131220
  2. METHOTREXATE [Concomitant]
     Dosage: 2.5 MG, UNK
  3. VITAMIN D                          /00107901/ [Concomitant]
     Dosage: 400 UNIT, UNK
  4. FOLIC ACID [Concomitant]
     Dosage: UNK

REACTIONS (2)
  - Fatigue [Unknown]
  - Injection site pain [Unknown]
